FAERS Safety Report 10247811 (Version 1)
Quarter: 2014Q2

REPORT INFORMATION
  Report Type: Spontaneous
  Country: FR (occurrence: FR)
  Receive Date: 20140619
  Receipt Date: 20140619
  Transmission Date: 20141212
  Serious: Yes (Hospitalization)
  Sender: FDA-Public Use
  Company Number: FR-B.I. PHARMACEUTICALS,INC./RIDGEFIELD-2014-BI-27352FF

PATIENT
  Age: 66 Year
  Sex: Male

DRUGS (2)
  1. PRADAXA [Suspect]
     Indication: ARRHYTHMIA SUPRAVENTRICULAR
     Dosage: 300 MG
     Route: 048
     Dates: start: 201312, end: 20140524
  2. KARDEGIC [Suspect]
     Indication: PRODUCT USED FOR UNKNOWN INDICATION
     Dosage: 75 MG
     Route: 048
     Dates: start: 2008, end: 20140524

REACTIONS (2)
  - Peritoneal haemorrhage [Recovered/Resolved]
  - Condition aggravated [Recovered/Resolved]
